FAERS Safety Report 6565519-6 (Version None)
Quarter: 2010Q1

REPORT INFORMATION
  Report Type: 
  Country: None (occurrence: None)
  Receive Date: 20100201
  Receipt Date: 20100121
  Transmission Date: 20100710
  Serious: Yes (Hospitalization)
  Sender: FDA-Public Use
  Company Number: US-BAXTER-2010BH001273

PATIENT
  Age: 48 Year
  Sex: Female

DRUGS (7)
  1. DIANEAL [Suspect]
     Indication: PERITONEAL DIALYSIS
     Route: 033
     Dates: start: 20091008, end: 20091001
  2. DIANEAL [Suspect]
     Route: 033
     Dates: start: 20091008, end: 20091001
  3. EXTRANEAL [Suspect]
     Indication: FLUID OVERLOAD
     Route: 033
     Dates: start: 20091013, end: 20091019
  4. EXTRANEAL [Suspect]
     Indication: PERITONEAL DIALYSIS
     Route: 033
     Dates: start: 20091013, end: 20091019
  5. EXTRANEAL [Suspect]
     Route: 033
     Dates: start: 20091023, end: 20091023
  6. EXTRANEAL [Suspect]
     Route: 033
     Dates: start: 20091023, end: 20091023
  7. VENOFER [Suspect]
     Indication: DRUG USE FOR UNKNOWN INDICATION
     Route: 042
     Dates: start: 20091019, end: 20091019

REACTIONS (8)
  - DYSPNOEA [None]
  - FEELING ABNORMAL [None]
  - FLUID OVERLOAD [None]
  - PRURITUS [None]
  - RASH [None]
  - RASH GENERALISED [None]
  - TREATMENT NONCOMPLIANCE [None]
  - WEIGHT INCREASED [None]
